FAERS Safety Report 6196932-7 (Version None)
Quarter: 2009Q2

REPORT INFORMATION
  Report Type: 
  Country: None (occurrence: None)
  Receive Date: 20090518
  Receipt Date: 20090518
  Transmission Date: 20091009
  Serious: No
  Sender: FDA-Public Use
  Company Number: None

PATIENT
  Age: 64 Year
  Sex: Female
  Weight: 74.3899 kg

DRUGS (4)
  1. FLUTICASONE PROPIONATE [Suspect]
     Indication: SEASONAL ALLERGY
     Dosage: USE 2 SPRAYS IN EACH NOSTRIL DAILY
     Route: 045
     Dates: start: 20090325
  2. LEVOXYL [Concomitant]
  3. ESTRADIOL [Concomitant]
  4. SULINDAC [Concomitant]

REACTIONS (5)
  - DRUG PRESCRIBING ERROR [None]
  - NASAL DISCOMFORT [None]
  - PRODUCT MEASURED POTENCY ISSUE [None]
  - THROMBOSIS [None]
  - UNEVALUABLE EVENT [None]
